FAERS Safety Report 6600605-3 (Version None)
Quarter: 2010Q1

REPORT INFORMATION
  Report Type: 
  Country: None (occurrence: None)
  Receive Date: 20100223
  Receipt Date: 20100223
  Transmission Date: 20100710
  Serious: Yes (Hospitalization)
  Sender: FDA-Public Use
  Company Number: None

PATIENT
  Sex: Female
  Weight: 63 kg

DRUGS (6)
  1. VINORELBINE TARTRATE [Suspect]
     Indication: BREAST CANCER METASTATIC
     Dosage: 33MG IV WEEKLY X 3
     Route: 042
     Dates: start: 20091204, end: 20100105
  2. SORAFENIB 200 MG [Suspect]
     Indication: BREAST CANCER METASTATIC
     Dosage: 200MG PO DAILY
     Route: 048
     Dates: start: 20091204, end: 20100220
  3. NEUPOGEN [Concomitant]
  4. PERCOCET [Concomitant]
  5. IBUPROFEN [Concomitant]
  6. LACTAID [Concomitant]

REACTIONS (2)
  - ABDOMINAL ADHESIONS [None]
  - PORTAL VEIN OCCLUSION [None]
